FAERS Safety Report 25612154 (Version 1)
Quarter: 2025Q3

REPORT INFORMATION
  Report Type: Spontaneous
  Country: US (occurrence: US)
  Receive Date: 20250728
  Receipt Date: 20250728
  Transmission Date: 20251020
  Serious: Yes (Other)
  Sender: RECORDATI
  Company Number: US-RECORDATI RARE DISEASE INC.-2025002619

PATIENT
  Sex: Female
  Weight: 90.249 kg

DRUGS (3)
  1. PANHEMATIN [Suspect]
     Active Substance: HEMIN
     Indication: Porphyria acute
     Dosage: UNK, QD (4 VIALS FOR 4 DAYS, INFUSION)
     Dates: start: 20250325, end: 202503
  2. PANHEMATIN [Suspect]
     Active Substance: HEMIN
     Dates: start: 20250404, end: 20250407
  3. PANHEMATIN [Suspect]
     Active Substance: HEMIN
     Dates: start: 20250508, end: 20250511

REACTIONS (8)
  - Phlebitis [Unknown]
  - Head discomfort [Unknown]
  - Abdominal pain upper [Recovering/Resolving]
  - Headache [Not Recovered/Not Resolved]
  - Serum ferritin increased [Unknown]
  - Pyrexia [Unknown]
  - Disease progression [Recovered/Resolved]
  - Disease progression [Recovered/Resolved]

NARRATIVE: CASE EVENT DATE: 20250101
